FAERS Safety Report 6267357-0 (Version None)
Quarter: 2009Q3

REPORT INFORMATION
  Report Type: 
  Country: None (occurrence: None)
  Receive Date: 20090714
  Receipt Date: 20090703
  Transmission Date: 20100115
  Serious: Yes (Hospitalization)
  Sender: FDA-Public Use
  Company Number: B0582068A

PATIENT
  Sex: Female

DRUGS (17)
  1. FORTUM [Suspect]
     Route: 042
     Dates: start: 20090310, end: 20090317
  2. RIFAMPICIN [Suspect]
     Route: 042
     Dates: start: 20090311, end: 20090313
  3. FOSFOMYCIN [Suspect]
     Route: 042
     Dates: start: 20090311, end: 20090313
  4. LOVENOX [Suspect]
     Indication: PROPHYLAXIS
     Route: 058
     Dates: start: 20090312, end: 20090317
  5. KEPPRA [Concomitant]
  6. LASIX [Concomitant]
  7. TRIFLUCAN [Concomitant]
  8. MIDAZOLAM HCL [Concomitant]
  9. ACETAMINOPHEN [Concomitant]
  10. URBANYL [Concomitant]
  11. TAZOCILLINE [Concomitant]
  12. AMIKLIN [Concomitant]
  13. TARGOCID [Concomitant]
  14. CIFLOX [Concomitant]
  15. TIENAM [Concomitant]
  16. VANCOMYCIN [Concomitant]
  17. SODIUM HEPARIN [Concomitant]

REACTIONS (4)
  - BLOOD BILIRUBIN INCREASED [None]
  - CHOLESTASIS [None]
  - JAUNDICE [None]
  - TRANSAMINASES INCREASED [None]
